FAERS Safety Report 4514007-7 (Version None)
Quarter: 2004Q4

REPORT INFORMATION
  Report Type: 
  Country: None (occurrence: None)
  Receive Date: 20041130
  Receipt Date: 20041018
  Transmission Date: 20050328
  Serious: No
  Sender: FDA-Public Use
  Company Number: US-GLAXOSMITHKLINE-A0530238A

PATIENT
  Age: 62 Year
  Sex: Male

DRUGS (5)
  1. WELLBUTRIN XL [Suspect]
     Indication: DEPRESSION
     Dosage: 300MG PER DAY
     Route: 048
     Dates: start: 20041001
  2. KLONOPIN [Concomitant]
  3. COZAAR [Concomitant]
  4. LIPITOR [Concomitant]
  5. PROSCAR [Concomitant]

REACTIONS (4)
  - ANXIETY [None]
  - INSOMNIA [None]
  - POLYURIA [None]
  - WEIGHT DECREASED [None]
